FAERS Safety Report 23774333 (Version 1)
Quarter: 2024Q2

REPORT INFORMATION
  Report Type: Spontaneous
  Country: CN (occurrence: CN)
  Receive Date: 20240423
  Receipt Date: 20240423
  Transmission Date: 20240716
  Serious: Yes (Hospitalization)
  Sender: FDA-Public Use
  Company Number: CN-FreseniusKabi-FK202406453

PATIENT
  Age: 40 Year
  Sex: Male
  Weight: 65 kg

DRUGS (5)
  1. EGG PHOSPHOLIPIDS\GLYCERIN\MEDIUM-CHAIN TRIGLYCERIDES\SOYBEAN OIL [Suspect]
     Active Substance: EGG PHOSPHOLIPIDS\GLYCERIN\MEDIUM-CHAIN TRIGLYCERIDES\SOYBEAN OIL
     Indication: Nutritional supplementation
     Dosage: FORM: INJECTION ?ROUTE: INTRAVENOUS
     Dates: start: 20240407, end: 20240408
  2. MEROPENEM [Suspect]
     Active Substance: MEROPENEM
     Indication: Anti-infective therapy
     Dosage: FORM: POWDER FOR INJECTION ?ROUTE: INTRAVENOUS DRIP
     Dates: start: 20240406, end: 20240409
  3. AMINO ACIDS, SOURCE UNSPECIFIED [Concomitant]
     Active Substance: AMINO ACIDS, SOURCE UNSPECIFIED
     Indication: Nutritional supplementation
     Dosage: FORM: INJECTION ?ROUTE: INTRAVENOUS DRIP
     Dates: start: 20240405, end: 20240412
  4. LEVOFLOXACIN MESYLATE [Concomitant]
     Active Substance: LEVOFLOXACIN MESYLATE
     Indication: Vitamin supplementation
     Dosage: FORM: POWDER FOR INJECTION ?ROUTE: INTRAVENOUS DRIP
     Dates: start: 20240405, end: 20240412
  5. Bromhexine Hydrochloride Injection [Concomitant]
     Indication: Sputum retention
     Dosage: FORM: INJECTION ?ROUTE: INTRAVENOUS DRIP
     Dates: start: 20240405, end: 20240412

REACTIONS (1)
  - Pancytopenia [Recovering/Resolving]

NARRATIVE: CASE EVENT DATE: 20240409
